FAERS Safety Report 8307429 (Version 2)
Quarter: 2013Q2

REPORT INFORMATION
  Report Type: Spontaneous
  Country: US (occurrence: US)
  Receive Date: 20111222
  Receipt Date: 20130624
  Transmission Date: 20140414
  Serious: Yes (Death)
  Sender: FDA-Public Use
  Company Number: US-PFIZER INC-2011308996

PATIENT
  Age: 53 Year
  Sex: Male

DRUGS (6)
  1. AMLODIPINE BESILATE [Suspect]
  2. ATORVASTATIN CALCIUM [Suspect]
  3. VENLAFAXINE HCL [Suspect]
  4. BISOPROLOL [Suspect]
  5. BUPROPION [Suspect]
  6. HYDROCHLOROTHIAZIDE [Suspect]

REACTIONS (1)
  - Completed suicide [Fatal]
